FAERS Safety Report 23638422 (Version 3)
Quarter: 2024Q4

REPORT INFORMATION
  Report Type: Spontaneous
  Country: JP (occurrence: JP)
  Receive Date: 20240315
  Receipt Date: 20241004
  Transmission Date: 20250115
  Serious: Yes (Hospitalization, Other)
  Sender: CARA THERAPEUTICS
  Company Number: JP-CARA THERAPEUTICS, INC.-2024-00112-JP

PATIENT
  Age: 77 Year
  Sex: Male

DRUGS (19)
  1. KORSUVA [Suspect]
     Active Substance: DIFELIKEFALIN ACETATE
     Indication: Pruritus
     Dosage: 25 ?G
     Route: 042
     Dates: start: 20240110, end: 20240131
  2. LEVETIRACETAM [Concomitant]
     Active Substance: LEVETIRACETAM
  3. RABEPRAZOLE SODIUM [Concomitant]
     Active Substance: RABEPRAZOLE SODIUM
  4. IMIDAPRIL HYDROCHLORIDE [Concomitant]
     Active Substance: IMIDAPRIL HYDROCHLORIDE
  5. BISOPROLOL FUMARATE [Concomitant]
     Active Substance: BISOPROLOL FUMARATE
  6. CLOPIDOGREL [Concomitant]
     Active Substance: CLOPIDOGREL BISULFATE
  7. WARFARIN [Concomitant]
     Active Substance: WARFARIN
  8. UNSPECIFIED INGREDIENT [Concomitant]
     Active Substance: UNSPECIFIED INGREDIENT
  9. CAMOSTAT MESYLATE [Concomitant]
     Active Substance: CAMOSTAT MESYLATE
  10. ELDECALCITOL [Concomitant]
     Active Substance: ELDECALCITOL
  11. BROTIZOLAM [Concomitant]
     Active Substance: BROTIZOLAM
  12. TOCOPHERYL NICOTINATE, D-.ALPHA. [Concomitant]
     Active Substance: TOCOPHERYL NICOTINATE, D-.ALPHA.
  13. SODIUM FERROUS CITRATE [Concomitant]
     Active Substance: SODIUM FERROUS CITRATE
  14. LEVOTHYROXINE SODIUM [Concomitant]
     Active Substance: LEVOTHYROXINE SODIUM
  15. CORTRIL [Concomitant]
     Active Substance: HYDROCORTISONE
  16. LOXOPROFEN SODIUM DIHYDRATE [Concomitant]
     Active Substance: LOXOPROFEN SODIUM DIHYDRATE
  17. MEROPENEM [Concomitant]
     Active Substance: MEROPENEM
  18. VANCOMYCIN [Concomitant]
     Active Substance: VANCOMYCIN
  19. DORIPENEM MONOHYDRATE [Concomitant]
     Active Substance: DORIPENEM MONOHYDRATE

REACTIONS (9)
  - Osteomyelitis [Recovering/Resolving]
  - Back pain [Recovering/Resolving]
  - Dyspnoea [Recovered/Resolved]
  - Fracture [Recovering/Resolving]
  - Blood pressure decreased [Recovered/Resolved]
  - White blood cell count increased [Recovering/Resolving]
  - C-reactive protein increased [Recovering/Resolving]
  - Somnolence [Recovered/Resolved]
  - Dizziness [Recovered/Resolved]

NARRATIVE: CASE EVENT DATE: 20240101
